FAERS Safety Report 5948522-6 (Version None)
Quarter: 2008Q4

REPORT INFORMATION
  Report Type: 
  Country: None (occurrence: None)
  Receive Date: 20081111
  Receipt Date: 20081103
  Transmission Date: 20090506
  Serious: Yes (Other)
  Sender: FDA-Public Use
  Company Number: B0545609A

PATIENT
  Age: 39 Year
  Sex: Female

DRUGS (3)
  1. CEFUROXIME [Suspect]
     Indication: POLLAKIURIA
     Dosage: 500MG PER DAY
     Route: 048
     Dates: start: 20080403, end: 20080404
  2. EUTIROX [Concomitant]
     Indication: HYPOTHYROIDISM
     Dosage: 50MG PER DAY
     Route: 048
     Dates: start: 20070521
  3. ZARATOR [Concomitant]
     Dosage: 20MG PER DAY
     Route: 048
     Dates: start: 20080324

REACTIONS (2)
  - HYPOTENSION [None]
  - LARYNGEAL OEDEMA [None]
